FAERS Safety Report 9088707 (Version 1)
Quarter: 2013Q1

REPORT INFORMATION
  Report Type: Report from Study
  Country: US (occurrence: US)
  Receive Date: 20130130
  Receipt Date: 20130130
  Transmission Date: 20140127
  Serious: No
  Sender: FDA-Public Use
  Company Number: US-ABBOTT-12P-163-0979655-00

PATIENT
  Age: 26 Year
  Sex: Female

DRUGS (8)
  1. HUMIRA [Suspect]
     Indication: CROHN^S DISEASE
     Dates: start: 20120725
  2. CYMBALTA [Concomitant]
     Indication: ANXIETY
  3. PREDNISONE [Concomitant]
     Indication: CROHN^S DISEASE
  4. NEURONTIN [Concomitant]
     Indication: NEURALGIA
     Dosage: 2 TIMES DAILY AND 2 AT HOUR OF SLEEP
  5. TRAZODONE [Concomitant]
     Indication: INSOMNIA
     Dosage: AT HOUR OF SLEEP
  6. BUSPAR [Concomitant]
     Indication: MOOD ALTERED
  7. LAMICTAL [Concomitant]
     Indication: MOOD ALTERED
  8. LAMICTAL [Concomitant]
     Indication: ANXIETY

REACTIONS (2)
  - Erythema [Not Recovered/Not Resolved]
  - Contusion [Unknown]
